FAERS Safety Report 15531762 (Version 1)
Quarter: 2018Q4

REPORT INFORMATION
  Report Type: Spontaneous
  Country: US (occurrence: US)
  Receive Date: 20181019
  Receipt Date: 20181019
  Transmission Date: 20190205
  Serious: Yes (Other)
  Sender: FDA-Public Use
  Company Number: US-CURIUM PHARMACEUTICALS-201000496

PATIENT
  Age: 51 Year
  Sex: Female

DRUGS (2)
  1. SODIUM IODIDE I 131 [Suspect]
     Active Substance: SODIUM IODIDE I-131
     Indication: PAPILLARY THYROID CANCER
     Route: 065
     Dates: start: 200303, end: 200303
  2. SODIUM IODIDE I 131 [Suspect]
     Active Substance: SODIUM IODIDE I-131
     Indication: PAPILLARY THYROID CANCER
     Route: 065
     Dates: start: 200312, end: 200312

REACTIONS (1)
  - Endocrine ophthalmopathy [Recovering/Resolving]

NARRATIVE: CASE EVENT DATE: 2007
